FAERS Safety Report 17644385 (Version 5)
Quarter: 2022Q2

REPORT INFORMATION
  Report Type: Spontaneous
  Country: US (occurrence: US)
  Receive Date: 20200408
  Receipt Date: 20220502
  Transmission Date: 20220720
  Serious: No
  Sender: FDA-Public Use
  Company Number: US-PFIZER INC-2020144904

PATIENT
  Age: 75 Year
  Sex: Female

DRUGS (1)
  1. LYRICA [Suspect]
     Active Substance: PREGABALIN
     Indication: Neuropathy peripheral
     Dosage: UNK

REACTIONS (8)
  - Product dose omission issue [Unknown]
  - Pain in extremity [Unknown]
  - Limb discomfort [Unknown]
  - Burning sensation [Unknown]
  - Insomnia [Unknown]
  - Pain [Unknown]
  - Headache [Unknown]
  - Hypoacusis [Unknown]
